FAERS Safety Report 7647714-8 (Version None)
Quarter: 2011Q3

REPORT INFORMATION
  Report Type: 
  Country: None (occurrence: None)
  Receive Date: 20110801
  Receipt Date: 20110801
  Transmission Date: 20111222
  Serious: No
  Sender: FDA-Public Use
  Company Number: None

PATIENT
  Age: 75 Year
  Sex: Female
  Weight: 63.502 kg

DRUGS (1)
  1. SULFAMETHOXAZOLE AND TRIMETHOPRIM DOUBLE STRENGTH [Suspect]
     Indication: ARTHROPOD BITE
     Dosage: 2 TABLETS
     Dates: start: 20110727, end: 20110728

REACTIONS (5)
  - GAIT DISTURBANCE [None]
  - MYALGIA [None]
  - PAIN IN EXTREMITY [None]
  - NAUSEA [None]
  - PAIN [None]
